FAERS Safety Report 9523832 (Version 1)
Quarter: 2013Q1

REPORT INFORMATION
  Report Type: Spontaneous
  Country: US (occurrence: None)
  Receive Date: 20130305
  Receipt Date: 20130305
  Transmission Date: 20140127
  Serious: Yes (Other)
  Sender: FDA-Public Use
  Company Number: 163-21880-12020270

PATIENT
  Age: 64 Year
  Sex: Male
  Weight: 110.68 kg

DRUGS (9)
  1. REVLIMID [Suspect]
     Indication: PLASMA CELL MYELOMA
     Route: 048
     Dates: start: 20091103
  2. ACYCLOVIR(ACICLOVIR)(UNKNOWN) [Concomitant]
  3. OXYCODONE(OXYCODONE)(UNKNOWN) [Concomitant]
  4. MORPHINE(MORPHINE)(UNKNOWN) [Concomitant]
  5. EUPROPION(BUPROPION)(UNKNOWN) [Concomitant]
  6. ZOLPIDEM(ZOLPIDEM)(UNKNOWN) [Concomitant]
  7. VELCADE(BORTEZOMIB)(UNKNOWN) [Concomitant]
  8. ZOMETA(ZOLEDRONIC ACID)(UNKNOWN) [Concomitant]
  9. LORAZEPAM(LORAZEPAM)(UNKNOWN) [Concomitant]

REACTIONS (1)
  - Plasma cell myeloma [None]
